FAERS Safety Report 16841565 (Version 1)
Quarter: 2019Q3

REPORT INFORMATION
  Report Type: Spontaneous
  Country: US (occurrence: US)
  Receive Date: 20190923
  Receipt Date: 20190923
  Transmission Date: 20191005
  Serious: No
  Sender: FDA-Public Use
  Company Number: US-ASTRAZENECA-2019SF22261

PATIENT
  Age: 30718 Day
  Sex: Male
  Weight: 118.8 kg

DRUGS (11)
  1. BYDUREON [Suspect]
     Active Substance: EXENATIDE
     Route: 058
  2. FINASTERIDE. [Concomitant]
     Active Substance: FINASTERIDE
  3. ATORVASTATIN [Concomitant]
     Active Substance: ATORVASTATIN
  4. SPIRIVA RESPIMAT [Concomitant]
     Active Substance: TIOTROPIUM BROMIDE
  5. POTASSIUM CHLORIDE. [Concomitant]
     Active Substance: POTASSIUM CHLORIDE
  6. ELIQUIS [Concomitant]
     Active Substance: APIXABAN
     Indication: CEREBROVASCULAR ACCIDENT
  7. AMLODIPINE [Concomitant]
     Active Substance: AMLODIPINE BESYLATE
  8. TAMSULOSIN [Concomitant]
     Active Substance: TAMSULOSIN
  9. FUROSEMIDE. [Concomitant]
     Active Substance: FUROSEMIDE
  10. IRBESARTAN. [Concomitant]
     Active Substance: IRBESARTAN
  11. BAYER ASPIRIN [Concomitant]
     Active Substance: ASPIRIN

REACTIONS (3)
  - Contusion [Unknown]
  - Wrong technique in device usage process [Unknown]
  - Arrhythmia [Unknown]

NARRATIVE: CASE EVENT DATE: 20190824
